FAERS Safety Report 9779232 (Version 1)
Quarter: 2013Q4

REPORT INFORMATION
  Report Type: Report from Study
  Country: NL (occurrence: NL)
  Receive Date: 20131223
  Receipt Date: 20131223
  Transmission Date: 20140711
  Serious: Yes (Death)
  Sender: FDA-Public Use
  Company Number: PHHY2013NL150096

PATIENT
  Sex: Female

DRUGS (2)
  1. SANDOSTATIN LAR [Suspect]
     Dosage: 60 MG, ONCE PER 2 WEEKS
     Dates: start: 20080514
  2. SANDOSTATIN LAR [Suspect]
     Dosage: 60 MG, ONCE PER 2 WEEKS
     Dates: start: 20120419

REACTIONS (1)
  - Death [Fatal]
